FAERS Safety Report 25243251 (Version 1)
Quarter: 2025Q2

REPORT INFORMATION
  Report Type: Spontaneous
  Country: CN (occurrence: CN)
  Receive Date: 20250428
  Receipt Date: 20250428
  Transmission Date: 20250716
  Serious: Yes (Other)
  Sender: AMGEN
  Company Number: CN-SERVIER-S25005441

PATIENT

DRUGS (5)
  1. IVABRADINE [Suspect]
     Active Substance: IVABRADINE
     Indication: Heart failure with reduced ejection fraction
     Dosage: 2.5 MG, BID ( INITIAL DOSE)
     Route: 065
  2. IVABRADINE [Suspect]
     Active Substance: IVABRADINE
     Dosage: 5 MG, BID (IF NO ADVERSE REACTIONS WERE OBSERVED AND THE RESTING HEART RATE WAS }60  BEATS/MIN AFTER
     Route: 065
  3. IVABRADINE [Suspect]
     Active Substance: IVABRADINE
     Dosage: 7.5 MG, BID (RESTING HEART RATE REMAINED }60 BEATS/MIN AFTER 2 WEEKS, THE SINGLE  DOSE WAS FURTHER I
     Route: 065
  4. BISOPROLOL [Suspect]
     Active Substance: BISOPROLOL
     Indication: Heart failure with reduced ejection fraction
     Dosage: 1.25 MG, QD
     Route: 065
  5. BISOPROLOL [Suspect]
     Active Substance: BISOPROLOL
     Route: 065

REACTIONS (4)
  - Cardiac failure [Unknown]
  - Atrial fibrillation [Unknown]
  - Bradycardia [Unknown]
  - Drug ineffective [Recovered/Resolved]
